FAERS Safety Report 14148493 (Version 4)
Quarter: 2018Q4

REPORT INFORMATION
  Report Type: Spontaneous
  Country: DE (occurrence: DE)
  Receive Date: 20171101
  Receipt Date: 20181220
  Transmission Date: 20190204
  Serious: Yes (Death, Life-Threatening, Other)
  Sender: FDA-Public Use
  Company Number: DE-ACCORD-060453

PATIENT
  Age: 47 Year
  Sex: Male

DRUGS (8)
  1. NIVOLUMAB [Suspect]
     Active Substance: NIVOLUMAB
     Indication: LUNG SQUAMOUS CELL CARCINOMA STAGE III
     Dates: start: 201603
  2. DOLUTEGRAVIR [Concomitant]
     Active Substance: DOLUTEGRAVIR
     Indication: HIV INFECTION
  3. DOCETAXEL. [Suspect]
     Active Substance: DOCETAXEL
     Indication: NON-SMALL CELL LUNG CANCER
     Dates: start: 2016
  4. RITONAVIR. [Concomitant]
     Active Substance: RITONAVIR
     Indication: HIV INFECTION
  5. DARUNAVIR [Concomitant]
     Active Substance: DARUNAVIR
     Indication: HIV INFECTION
  6. VINORELBINE [Suspect]
     Active Substance: VINORELBINE\VINORELBINE TARTRATE
     Indication: LUNG SQUAMOUS CELL CARCINOMA STAGE III
     Dates: start: 201502
  7. CISPLATIN. [Suspect]
     Active Substance: CISPLATIN
     Indication: LUNG SQUAMOUS CELL CARCINOMA STAGE III
     Dates: start: 201502
  8. GEMCITABINE/GEMCITABINE HYDROCHLORIDE [Suspect]
     Active Substance: GEMCITABINE\GEMCITABINE HYDROCHLORIDE
     Indication: NON-SMALL CELL LUNG CANCER
     Dates: start: 2016

REACTIONS (5)
  - Enteritis [Unknown]
  - Drug ineffective [Unknown]
  - Neutropenic sepsis [Unknown]
  - CD4 lymphocytes decreased [Unknown]
  - Bone marrow disorder [Unknown]

NARRATIVE: CASE EVENT DATE: 2015
